FAERS Safety Report 25013028 (Version 1)
Quarter: 2025Q1

REPORT INFORMATION
  Report Type: Spontaneous
  Country: BR (occurrence: BR)
  Receive Date: 20250226
  Receipt Date: 20250226
  Transmission Date: 20250409
  Serious: Yes (Hospitalization, Other)
  Sender: JOHNSON AND JOHNSON
  Company Number: BR-JNJFOC-20250258644

PATIENT
  Sex: Female

DRUGS (1)
  1. TALVEY [Suspect]
     Active Substance: TALQUETAMAB-TGVS
     Indication: Plasma cell myeloma
     Dates: start: 20241105

REACTIONS (13)
  - Thrombocytopenia [Unknown]
  - Cytopenia [Unknown]
  - Neurotoxicity [Unknown]
  - Ovarian cancer [Unknown]
  - Fall [Unknown]
  - Asthenia [Unknown]
  - Anaemia [Unknown]
  - Weight decreased [Unknown]
  - Dysgeusia [Unknown]
  - Dry mouth [Unknown]
  - Decreased appetite [Unknown]
  - Skin exfoliation [Unknown]
  - Onychomadesis [Unknown]
